FAERS Safety Report 5781342-4 (Version None)
Quarter: 2008Q2

REPORT INFORMATION
  Report Type: 
  Country: None (occurrence: None)
  Receive Date: 20080619
  Receipt Date: 20080609
  Transmission Date: 20081010
  Serious: Yes (Other)
  Sender: FDA-Public Use
  Company Number: 235481J08USA

PATIENT
  Age: 64 Year
  Sex: Male

DRUGS (1)
  1. REBIF [Suspect]
     Indication: OFF LABEL USE
     Dosage: 44 MCGT, 3 IN 1 WEEKS, SUBCUTANEOUS
     Route: 058
     Dates: start: 20061012

REACTIONS (5)
  - CEREBROVASCULAR ACCIDENT [None]
  - CONDITION AGGRAVATED [None]
  - CONVULSION [None]
  - INJECTION SITE REACTION [None]
  - MULTIPLE SCLEROSIS [None]
